FAERS Safety Report 16340846 (Version 1)
Quarter: 2019Q2

REPORT INFORMATION
  Report Type: Spontaneous
  Country: DE (occurrence: DE)
  Receive Date: 20190522
  Receipt Date: 20190522
  Transmission Date: 20190711
  Serious: Yes (Other)
  Sender: FDA-Public Use
  Company Number: DE-BEH-2019102363

PATIENT
  Age: 3 Month
  Sex: Female
  Weight: 6 kg

DRUGS (1)
  1. PRIVIGEN [Suspect]
     Active Substance: HUMAN IMMUNOGLOBULIN G
     Indication: KAWASAKI^S DISEASE
     Dosage: DAILY DOSE: 1.6 G GRAM(S) EVERY TOTAL ; IN TOTAL
     Route: 042
     Dates: start: 20190424, end: 20190424

REACTIONS (6)
  - Tachycardia [Recovered/Resolved]
  - Hypotonia [Recovered/Resolved]
  - Apnoea [Recovered/Resolved]
  - Oxygen saturation decreased [Recovered/Resolved]
  - Tremor [Recovered/Resolved]
  - Peripheral circulatory failure [Recovered/Resolved]

NARRATIVE: CASE EVENT DATE: 20190424
